FAERS Safety Report 5162613-1 (Version None)
Quarter: 2006Q4

REPORT INFORMATION
  Report Type: 
  Country: None (occurrence: None)
  Receive Date: 20061121
  Receipt Date: 20061115
  Transmission Date: 20070319
  Serious: Yes (Death, Life-Threatening, Hospitalization, Other)
  Sender: FDA-Public Use
  Company Number: 163-21880-06050461

PATIENT
  Age: 64 Year
  Sex: Male

DRUGS (4)
  1. REVLIMID [Suspect]
     Indication: NON-HODGKIN'S LYMPHOMA
     Dosage: 10 MG, DAILY DURING 21 DAYS CYCLE, ORAL
     Route: 048
     Dates: start: 20060418
  2. AVASTIN [Concomitant]
  3. TOPOTECAN (TOPOTECAN) [Concomitant]
  4. NEUPOGEN [Concomitant]

REACTIONS (10)
  - DISEASE PROGRESSION [None]
  - FLUID OVERLOAD [None]
  - LEUKOPENIA [None]
  - MALIGNANT NEOPLASM PROGRESSION [None]
  - METASTASES TO LUNG [None]
  - NEUTROPENIA [None]
  - PLEURAL EFFUSION [None]
  - PSEUDOMONAL SEPSIS [None]
  - SARCOMA [None]
  - THROMBOCYTOPENIA [None]
